FAERS Safety Report 8141308-6 (Version None)
Quarter: 2012Q1

REPORT INFORMATION
  Report Type: 
  Country: None (occurrence: None)
  Receive Date: 20120216
  Receipt Date: 20120203
  Transmission Date: 20120608
  Serious: Yes (Other)
  Sender: FDA-Public Use
  Company Number: JP-ELI_LILLY_AND_COMPANY-JP201112006163

PATIENT
  Age: 45 Year
  Sex: Male
  Weight: 55 kg

DRUGS (5)
  1. ROHYPNOL [Concomitant]
     Indication: PROPHYLAXIS
     Dosage: 1 MG, QD
     Route: 048
     Dates: start: 20110501, end: 20111205
  2. LEXOTAN [Concomitant]
     Dosage: 2 MG, QD
     Dates: start: 20120111
  3. ZYPREXA [Suspect]
     Indication: AFFECT LABILITY
     Dosage: 2.5 MG, TID
     Route: 048
     Dates: start: 20110501, end: 20111205
  4. MEILAX [Concomitant]
     Indication: PROPHYLAXIS
     Dosage: 2 MG, BID
     Route: 048
     Dates: start: 20110501, end: 20111205
  5. LEXOTAN [Concomitant]
     Indication: PROPHYLAXIS
     Dosage: 2 MG, BID
     Route: 048
     Dates: start: 20110501

REACTIONS (2)
  - OFF LABEL USE [None]
  - THROMBOCYTOPENIA [None]
